FAERS Safety Report 6089158-9 (Version None)
Quarter: 2009Q1

REPORT INFORMATION
  Report Type: 
  Country: None (occurrence: None)
  Receive Date: 20090224
  Receipt Date: 20090218
  Transmission Date: 20090719
  Serious: Yes (Death)
  Sender: FDA-Public Use
  Company Number: US-CELGENEUS-163-21880-08110850

PATIENT
  Sex: Female

DRUGS (2)
  1. REVLIMID [Suspect]
     Indication: MULTIPLE MYELOMA
     Route: 048
     Dates: start: 20080911, end: 20081001
  2. REVLIMID [Suspect]
     Route: 048
     Dates: start: 20081107

REACTIONS (2)
  - CARDIAC FAILURE [None]
  - LUNG ADENOCARCINOMA [None]
